FAERS Safety Report 9897146 (Version 1)
Quarter: 2014Q1

REPORT INFORMATION
  Report Type: Spontaneous
  Country: US (occurrence: US)
  Receive Date: 20140214
  Receipt Date: 20140214
  Transmission Date: 20141002
  Serious: No
  Sender: FDA-Public Use
  Company Number: US-009507513-1402USA003816

PATIENT
  Age: 39 Year
  Sex: Male

DRUGS (4)
  1. EPTIFIBATIDE [Suspect]
     Indication: THROMBOSIS IN DEVICE
     Dosage: 180 MICROGRAM PER KILOGRAM, FOR 2 TO 4 DAYS
  2. EPTIFIBATIDE [Suspect]
     Dosage: 1 MICROGRAM PER KILOGRAM PER MINUTE
  3. ASPIRIN [Concomitant]
     Dosage: 325 MG, QD
  4. HEPARIN [Concomitant]

REACTIONS (1)
  - No therapeutic response [Unknown]
